FAERS Safety Report 6340178-6 (Version None)
Quarter: 2009Q3

REPORT INFORMATION
  Report Type: 
  Country: None (occurrence: None)
  Receive Date: 20090902
  Receipt Date: 20090813
  Transmission Date: 20100115
  Serious: Yes (Hospitalization)
  Sender: FDA-Public Use
  Company Number: M-09-0780

PATIENT
  Age: 82 Year
  Sex: Female

DRUGS (8)
  1. KLOR-CON [Suspect]
     Indication: MINERAL SUPPLEMENTATION
     Dosage: 10 MEQ QD, PO
     Route: 048
  2. FUROSEMIDE (START-UNK, CONTIN.) [Concomitant]
  3. METOPROLOL (START-UNK, CONTIN.) [Concomitant]
  4. AMIODARONE (START-UNK, CONTIN.) [Concomitant]
  5. PLAVIX (START-UNK, CONTIN.) [Concomitant]
  6. COUMADIN (START-UNK, CONTIN.) [Concomitant]
  7. ADVAIR (START-UNK, CONTIN.) [Concomitant]
  8. AMBIEN (START-UNK, CONTIN.) [Concomitant]

REACTIONS (3)
  - DYSPNOEA [None]
  - PRODUCT COATING ISSUE [None]
  - PRODUCT SUBSTITUTION ISSUE [None]
